FAERS Safety Report 24646572 (Version 2)
Quarter: 2024Q4

REPORT INFORMATION
  Report Type: Report from Study
  Country: CA (occurrence: CA)
  Receive Date: 20241121
  Receipt Date: 20241231
  Transmission Date: 20250115
  Serious: Yes (Other)
  Sender: CELLTRION
  Company Number: CA-CELLTRION INC.-2020CA027074

PATIENT

DRUGS (19)
  1. RITUXIMAB-ABBS [Suspect]
     Active Substance: RITUXIMAB-ABBS
     Indication: Rheumatoid arthritis
     Dosage: 1000 MG, D1/D15
     Route: 042
     Dates: start: 20200826
  2. RITUXIMAB-ABBS [Suspect]
     Active Substance: RITUXIMAB-ABBS
     Dosage: 1000 MG (FREQUENCY: INFUSION 3)
     Route: 042
     Dates: start: 20200826
  3. RITUXIMAB-ABBS [Suspect]
     Active Substance: RITUXIMAB-ABBS
     Dosage: 1000 MG (FREQUENCY: INFUSION 3)
     Route: 042
     Dates: start: 20200826
  4. RITUXIMAB-ABBS [Suspect]
     Active Substance: RITUXIMAB-ABBS
     Dosage: 1000 MILLIGRAM, INFUSION 4
     Route: 042
     Dates: start: 20200826
  5. RITUXIMAB-ABBS [Suspect]
     Active Substance: RITUXIMAB-ABBS
     Dosage: 1000 MG, INFUSION # 5
     Route: 042
     Dates: start: 20200826
  6. RITUXIMAB-ABBS [Suspect]
     Active Substance: RITUXIMAB-ABBS
     Dosage: 1000 MG, INFUSION # 6
     Route: 042
     Dates: start: 20200826
  7. RITUXIMAB-ABBS [Suspect]
     Active Substance: RITUXIMAB-ABBS
     Dosage: 1000 MG, INFUSION #9
     Route: 042
     Dates: start: 20200826
  8. RITUXIMAB-ABBS [Suspect]
     Active Substance: RITUXIMAB-ABBS
     Dosage: 1000 MG, INFUSION #10
     Route: 042
     Dates: start: 20200826
  9. RITUXIMAB-ABBS [Suspect]
     Active Substance: RITUXIMAB-ABBS
     Dosage: 1000 MILLIGRAM
     Route: 042
     Dates: start: 20200826
  10. RITUXIMAB-ABBS [Suspect]
     Active Substance: RITUXIMAB-ABBS
     Dosage: 1000 MILLIGRAM, INFUSION#12
     Route: 042
     Dates: start: 20200826
  11. RITUXIMAB-ABBS [Suspect]
     Active Substance: RITUXIMAB-ABBS
     Dosage: 1000 MG, DAY1 AND 15
     Route: 042
     Dates: start: 20200826
  12. METHYLPREDNISOLONE [Concomitant]
     Active Substance: METHYLPREDNISOLONE
     Indication: Premedication
     Dosage: 100 MILLIGRAM
     Route: 042
  13. DIPHENHYDRAMINE [Concomitant]
     Active Substance: DIPHENHYDRAMINE
     Indication: Premedication
  14. ACETAMINOPHEN [Concomitant]
     Active Substance: ACETAMINOPHEN
     Indication: Premedication
     Dosage: 650 MILLIGRAM
     Route: 048
  15. PREDNISONE [Concomitant]
     Active Substance: PREDNISONE
     Dosage: N/A
  16. PREDNISONE [Concomitant]
     Active Substance: PREDNISONE
     Dosage: 5 MG, DAILY/ONGOING WEANING
     Route: 048
  17. SODIUM CHLORIDE [Concomitant]
     Active Substance: SODIUM CHLORIDE
  18. RAMIPRIL [Concomitant]
     Active Substance: RAMIPRIL
     Dosage: 5 MG, QD
  19. DIPHENHYDRAMINE HYDROCHLORIDE [Concomitant]
     Active Substance: DIPHENHYDRAMINE HYDROCHLORIDE
     Indication: Premedication
     Dosage: 50 MILLIGRAM
     Route: 048

REACTIONS (19)
  - Rheumatoid arthritis [Unknown]
  - Blood pressure abnormal [Unknown]
  - Blood pressure fluctuation [Unknown]
  - COVID-19 [Recovered/Resolved]
  - Hypertension [Unknown]
  - Upper respiratory tract infection [Not Recovered/Not Resolved]
  - Poor venous access [Recovered/Resolved]
  - Condition aggravated [Unknown]
  - Joint swelling [Unknown]
  - Poor venous access [Unknown]
  - Malaise [Unknown]
  - Eye inflammation [Unknown]
  - Bronchitis [Recovered/Resolved]
  - Visual impairment [Unknown]
  - Infusion site swelling [Unknown]
  - Oropharyngeal pain [Unknown]
  - Off label use [Unknown]
  - Treatment delayed [Unknown]
  - Intentional dose omission [Unknown]

NARRATIVE: CASE EVENT DATE: 20200826
